FAERS Safety Report 17954450 (Version 1)
Quarter: 2020Q2

REPORT INFORMATION
  Report Type: Spontaneous
  Country: US (occurrence: US)
  Receive Date: 20200629
  Receipt Date: 20200629
  Transmission Date: 20200714
  Serious: No
  Sender: FDA-Public Use
  Company Number: US-ASTRAZENECA-2020SE82253

PATIENT
  Age: 48 Year
  Sex: Male

DRUGS (1)
  1. PRILOSEC OTC [Suspect]
     Active Substance: OMEPRAZOLE MAGNESIUM
     Indication: GASTROOESOPHAGEAL REFLUX DISEASE
     Dosage: 1 TABLET, 1 /DAY IN THE MORNING
     Route: 048

REACTIONS (4)
  - Gastrooesophageal reflux disease [Unknown]
  - Drug ineffective for unapproved indication [Unknown]
  - Condition aggravated [Unknown]
  - Incorrect product administration duration [Unknown]
